FAERS Safety Report 25626749 (Version 1)
Quarter: 2025Q3

REPORT INFORMATION
  Report Type: Spontaneous
  Country: US (occurrence: None)
  Receive Date: 20250730
  Receipt Date: 20250730
  Transmission Date: 20251021
  Serious: Yes (Hospitalization)
  Sender: FDA-CTU
  Company Number: None

PATIENT
  Age: 32 Year
  Sex: Female

DRUGS (1)
  1. HUMIRA [Suspect]
     Active Substance: ADALIMUMAB
     Dosage: 40 MG EVERY OTHER WEEK ?

REACTIONS (7)
  - Urticaria [None]
  - Accident [None]
  - Intestinal obstruction [None]
  - Rheumatoid arthritis [None]
  - Pain in extremity [None]
  - Arthralgia [None]
  - Gait disturbance [None]
